FAERS Safety Report 5714093-2 (Version None)
Quarter: 2008Q2

REPORT INFORMATION
  Report Type: 
  Country: None (occurrence: None)
  Receive Date: 20080422
  Receipt Date: 20080422
  Transmission Date: 20081010
  Serious: Yes (Hospitalization)
  Sender: FDA-Public Use
  Company Number: None

PATIENT
  Sex: Female
  Weight: 66.4 kg

DRUGS (3)
  1. CLOFARABINE [Suspect]
     Indication: STEM CELL TRANSPLANT
     Dosage: 76 MG DAILY
     Dates: start: 20071114, end: 20071117
  2. CAMPATH [Suspect]
     Indication: STEM CELL TRANSPLANT
     Dosage: 20 MG DAILY
     Dates: start: 20071114, end: 20071117
  3. MELPHALAN [Suspect]
     Dosage: 266MG DAILY
     Dates: start: 20071126, end: 20071126

REACTIONS (7)
  - BLOOD CREATININE INCREASED [None]
  - BLOOD POTASSIUM DECREASED [None]
  - CARBON DIOXIDE DECREASED [None]
  - DIARRHOEA [None]
  - DISORIENTATION [None]
  - NAUSEA [None]
  - VOMITING [None]
